FAERS Safety Report 21696665 (Version 1)
Quarter: 2022Q4

REPORT INFORMATION
  Report Type: Spontaneous
  Country: US (occurrence: US)
  Receive Date: 20221207
  Receipt Date: 20221207
  Transmission Date: 20230113
  Serious: Yes (Hospitalization, Other)
  Sender: FDA-Public Use
  Company Number: US-ALXN-A202215127

PATIENT
  Age: 57 Year
  Sex: Female

DRUGS (2)
  1. SOLIRIS [Suspect]
     Active Substance: ECULIZUMAB
     Indication: Atypical haemolytic uraemic syndrome
     Dosage: UNK
     Route: 065
  2. ULTOMIRIS [Suspect]
     Active Substance: RAVULIZUMAB-CWVZ
     Indication: Atypical haemolytic uraemic syndrome
     Dosage: UNK
     Route: 065

REACTIONS (7)
  - Mechanical ventilation [Unknown]
  - Intensive care [Unknown]
  - Haemophagocytic lymphohistiocytosis [Unknown]
  - Bacteraemia [Unknown]
  - Gastroenteritis Escherichia coli [Unknown]
  - Tracheostomy [Unknown]
  - Central venous catheterisation [Unknown]
